FAERS Safety Report 14128882 (Version 1)
Quarter: 2017Q4

REPORT INFORMATION
  Report Type: Spontaneous
  Country: US (occurrence: US)
  Receive Date: 20171026
  Receipt Date: 20171026
  Transmission Date: 20180321
  Serious: Yes (Hospitalization, Other)
  Sender: FDA-Public Use
  Company Number: US-GLAXOSMITHKLINE-US2017161777

PATIENT
  Age: 48 Year
  Sex: Male

DRUGS (4)
  1. PULMICORT TURBUHALER [Concomitant]
     Active Substance: BUDESONIDE
  2. IPRATROPIUM [Concomitant]
     Active Substance: IPRATROPIUM
  3. NUCALA [Suspect]
     Active Substance: MEPOLIZUMAB
     Indication: PRODUCT USED FOR UNKNOWN INDICATION
     Dosage: UNK
     Dates: start: 2017
  4. ALBUTEROL. [Concomitant]
     Active Substance: ALBUTEROL

REACTIONS (4)
  - Lung infiltration [Unknown]
  - Chest discomfort [Unknown]
  - Intensive care [Unknown]
  - General symptom [Unknown]

NARRATIVE: CASE EVENT DATE: 20171018
